FAERS Safety Report 6983774-5 (Version None)
Quarter: 2010Q3

REPORT INFORMATION
  Report Type: 
  Country: None (occurrence: None)
  Receive Date: 20100914
  Receipt Date: 20080507
  Transmission Date: 20110219
  Serious: Yes (Hospitalization)
  Sender: FDA-Public Use
  Company Number: US-WYE-H07165008

PATIENT
  Age: 7 Year
  Sex: Female

DRUGS (11)
  1. IBUPROFEN [Suspect]
     Indication: PYREXIA
     Dosage: UNKNOWN
     Route: 048
     Dates: start: 19990207
  2. IBUPROFEN [Suspect]
     Indication: ARTHRALGIA
  3. ALEVE (CAPLET) [Suspect]
     Indication: PYREXIA
     Dosage: UNKNOWN
     Route: 048
     Dates: start: 19990216
  4. ALEVE (CAPLET) [Suspect]
     Indication: ARTHRALGIA
  5. ZYBAN [Concomitant]
     Dosage: UNKNOWN
     Route: 065
  6. METHOTREXATE [Concomitant]
     Dosage: UNKNOWN
     Route: 065
     Dates: start: 19970715
  7. ARSENIC TRIOXIDE [Concomitant]
     Dosage: UNKNOWN
     Route: 065
     Dates: start: 19970222
  8. PENICILLIN [Concomitant]
     Dosage: UNKNOWN
     Route: 065
  9. NAPROSYN [Suspect]
     Indication: PYREXIA
     Dosage: UNKNOWN
     Route: 048
     Dates: start: 19990207
  10. NAPROSYN [Suspect]
     Indication: ARTHRALGIA
  11. PREDNISONE [Concomitant]
     Dosage: UNKNOWN
     Route: 065
     Dates: start: 19990228

REACTIONS (19)
  - ABASIA [None]
  - ANAEMIA [None]
  - ARTHRALGIA [None]
  - DECREASED APPETITE [None]
  - FUNGAL INFECTION [None]
  - JOINT SWELLING [None]
  - LEUKOCYTOSIS [None]
  - LIVER FUNCTION TEST ABNORMAL [None]
  - MALAISE [None]
  - MIGRAINE [None]
  - MUSCULAR WEAKNESS [None]
  - NAUSEA [None]
  - OPTIC NERVE DISORDER [None]
  - PERICARDIAL EFFUSION [None]
  - PHOTOPHOBIA [None]
  - PLEURAL EFFUSION [None]
  - PYREXIA [None]
  - RED BLOOD CELL SEDIMENTATION RATE INCREASED [None]
  - RENAL IMPAIRMENT [None]
